FAERS Safety Report 5223786-5 (Version None)
Quarter: 2007Q1

REPORT INFORMATION
  Report Type: 
  Country: None (occurrence: None)
  Receive Date: 20070130
  Receipt Date: 20070119
  Transmission Date: 20070707
  Serious: Yes (Hospitalization)
  Sender: FDA-Public Use
  Company Number: FR-BAYER-200611193BFR

PATIENT
  Age: 75 Year
  Sex: Female
  Weight: 110 kg

DRUGS (9)
  1. ACARBOSE [Suspect]
     Indication: DIABETES MELLITUS
     Dosage: TOTAL DAILY DOSE: 50 MG  UNIT DOSE: 50 MG
     Route: 048
  2. ALLOPURINOL SODIUM [Suspect]
     Indication: HYPERURICAEMIA
     Route: 048
     Dates: end: 20061030
  3. TAREG [Suspect]
     Indication: HYPERTENSION
     Route: 048
     Dates: end: 20061030
  4. BIPRETERAX [Suspect]
     Indication: HYPERTENSION
     Route: 048
     Dates: start: 20050901, end: 20061030
  5. RANITIDINE [Suspect]
     Indication: UNEVALUABLE EVENT
     Route: 048
     Dates: end: 20061030
  6. TRIATEC [Suspect]
     Indication: HYPERTENSION
     Dosage: TOTAL DAILY DOSE: 5 MG  UNIT DOSE: 5 MG
     Route: 048
  7. LASIX [Concomitant]
     Indication: UNEVALUABLE EVENT
  8. DIAMICRON [Concomitant]
     Indication: UNEVALUABLE EVENT
  9. ASPEGIC 1000 [Concomitant]
     Indication: UNEVALUABLE EVENT

REACTIONS (6)
  - ALLERGIC OEDEMA [None]
  - ATRIAL FIBRILLATION [None]
  - DYSPNOEA [None]
  - INFECTION [None]
  - LARYNGEAL OEDEMA [None]
  - TONGUE OEDEMA [None]
